FAERS Safety Report 20680437 (Version 2)
Quarter: 2022Q2

REPORT INFORMATION
  Report Type: Spontaneous
  Country: US (occurrence: US)
  Receive Date: 20220406
  Receipt Date: 20220504
  Transmission Date: 20220720
  Serious: No
  Sender: FDA-Public Use
  Company Number: US-PFIZER INC-202200500032

PATIENT
  Age: 64 Year
  Sex: Female
  Weight: 88.45 kg

DRUGS (4)
  1. CYTOMEL [Suspect]
     Active Substance: LIOTHYRONINE SODIUM
     Indication: Thyroidectomy
     Dosage: 5 UG, 3X/DAY
     Dates: start: 1999
  2. CYTOMEL [Suspect]
     Active Substance: LIOTHYRONINE SODIUM
     Dosage: 0.5 MG, 3X/DAY, (SHE TAKES 90 PILLS A MONTH)
  3. UNITHROID [Concomitant]
     Active Substance: LEVOTHYROXINE SODIUM
     Indication: Thyroidectomy
     Dosage: 88 MG, DAILY
  4. SYNTHROID [Concomitant]
     Active Substance: LEVOTHYROXINE SODIUM
     Dosage: UNK

REACTIONS (1)
  - Off label use [Unknown]
